FAERS Safety Report 7308207-0 (Version None)
Quarter: 2011Q1

REPORT INFORMATION
  Report Type: 
  Country: None (occurrence: None)
  Receive Date: 20110223
  Receipt Date: 20110218
  Transmission Date: 20110831
  Serious: Yes (Hospitalization)
  Sender: FDA-Public Use
  Company Number: DE-ROCHE-761010

PATIENT
  Sex: Male

DRUGS (7)
  1. METOCAL [Concomitant]
     Dates: start: 20110105
  2. CAPECITABINE [Suspect]
     Indication: RECTAL CANCER
     Dosage: LAST DOSE: 09 DEC 2010
     Route: 048
     Dates: start: 20101102
  3. LOPEDIUM [Concomitant]
     Dates: start: 20101116
  4. OXALIPLATIN [Suspect]
     Indication: RECTAL CANCER
     Dosage: LAST DOSE: 30 NOV 2010
     Route: 042
     Dates: start: 20101102
  5. KAMILLOSAN [Concomitant]
     Indication: ANAL INFLAMMATION
     Dates: start: 20101130
  6. BEPANTHEN LOTION [Concomitant]
     Indication: ANAL INFLAMMATION
     Dates: start: 20101130
  7. UREADIN [Concomitant]
     Dates: start: 20101130

REACTIONS (1)
  - ANASTOMOTIC LEAK [None]
